FAERS Safety Report 8380184-3 (Version None)
Quarter: 2012Q2

REPORT INFORMATION
  Report Type: 
  Country: None (occurrence: None)
  Receive Date: 20120523
  Receipt Date: 20120518
  Transmission Date: 20120825
  Serious: Yes (Other)
  Sender: FDA-Public Use
  Company Number: US-PFIZER INC-2012121397

PATIENT
  Sex: Male
  Weight: 90.703 kg

DRUGS (6)
  1. SEROQUEL [Concomitant]
     Indication: BLOOD TRIGLYCERIDES INCREASED
  2. SEROQUEL [Concomitant]
     Indication: BLOOD CHOLESTEROL INCREASED
     Dosage: 500 MG, DAILY
  3. VIAGRA [Suspect]
     Indication: SEXUAL DYSFUNCTION
     Dosage: 50 MG, AS NEEDED
     Route: 048
  4. TRICOR [Concomitant]
     Indication: BLOOD TRIGLYCERIDES INCREASED
  5. TRICOR [Concomitant]
     Indication: BLOOD CHOLESTEROL INCREASED
     Dosage: 145 MG, DAILY
  6. VYTORIN [Concomitant]
     Indication: BLOOD CHOLESTEROL INCREASED
     Dosage: 10/40MG DAILY OR TWO TIMES A DAY

REACTIONS (1)
  - NERVE COMPRESSION [None]
